FAERS Safety Report 15005386 (Version 1)
Quarter: 2018Q2

REPORT INFORMATION
  Report Type: Spontaneous
  Country: US (occurrence: US)
  Receive Date: 20180613
  Receipt Date: 20180613
  Transmission Date: 20180711
  Serious: Yes (Other)
  Sender: FDA-Public Use
  Company Number: US-BAYER-2018-109203

PATIENT
  Sex: Female

DRUGS (1)
  1. SKYLA [Suspect]
     Active Substance: LEVONORGESTREL
     Indication: CONTRACEPTION
     Dosage: 14 MCG/24HR, CONT
     Route: 015
     Dates: start: 20151006

REACTIONS (6)
  - Pregnancy with contraceptive device [None]
  - Gait inability [None]
  - Device dislocation [None]
  - Abdominal pain lower [None]
  - Hypoaesthesia [None]
  - Medical device discomfort [None]
